FAERS Safety Report 5191858-X (Version None)
Quarter: 2006Q4

REPORT INFORMATION
  Report Type: 
  Country: None (occurrence: None)
  Receive Date: 20061218
  Receipt Date: 20061208
  Transmission Date: 20070319
  Serious: Yes (Other)
  Sender: FDA-Public Use
  Company Number: HQWYE282115DEC06

PATIENT
  Age: 48 Year
  Sex: Female

DRUGS (1)
  1. PIPERACILLIN AND TAZOBACTAM [Suspect]
     Dosage: 5 GRAMS DAILY INTRAVENOUS
     Route: 042
     Dates: end: 20061101

REACTIONS (1)
  - RHABDOMYOLYSIS [None]
